FAERS Safety Report 8104417-3 (Version None)
Quarter: 2012Q1

REPORT INFORMATION
  Report Type: 
  Country: None (occurrence: None)
  Receive Date: 20120130
  Receipt Date: 20120125
  Transmission Date: 20120608
  Serious: Yes (Death, Hospitalization)
  Sender: FDA-Public Use
  Company Number: US-GILEAD-2011-0048401

PATIENT
  Sex: Female

DRUGS (11)
  1. SILDENAFIL [Concomitant]
  2. PRIMIDONE [Concomitant]
  3. OMEPRAZOLE [Concomitant]
  4. LEVOTHYROXINE SODIUM [Concomitant]
  5. AMIODARONE HCL [Concomitant]
  6. LETAIRIS [Suspect]
     Indication: PULMONARY ARTERIAL HYPERTENSION
     Dosage: 10 MG, UNK
     Route: 048
     Dates: start: 20090301, end: 20111201
  7. TYVASO [Concomitant]
  8. ASPIRIN [Concomitant]
  9. TREPROSTINIL [Concomitant]
  10. ALLOPURINOL [Concomitant]
  11. FUROSEMIDE [Concomitant]

REACTIONS (7)
  - RIGHT VENTRICULAR HYPERTROPHY [None]
  - PULMONARY HYPERTENSION [None]
  - VENTRICULAR TACHYCARDIA [None]
  - DISEASE RECURRENCE [None]
  - CARDIAC FAILURE CONGESTIVE [None]
  - COR PULMONALE [None]
  - DISEASE PROGRESSION [None]
